FAERS Safety Report 18350217 (Version 1)
Quarter: 2020Q4

REPORT INFORMATION
  Report Type: Spontaneous
  Country: US (occurrence: US)
  Receive Date: 20201006
  Receipt Date: 20201006
  Transmission Date: 20210114
  Serious: Yes (Other)
  Sender: FDA-Public Use
  Company Number: US-SUN PHARMACEUTICAL INDUSTRIES LTD-2020R1-263259

PATIENT
  Sex: Male

DRUGS (1)
  1. METFORMIN [Suspect]
     Active Substance: METFORMIN HYDROCHLORIDE
     Indication: GESTATIONAL DIABETES
     Dosage: 1000 MILLIGRAM, DAILY
     Route: 064

REACTIONS (4)
  - Foetal exposure during pregnancy [Unknown]
  - Acute respiratory failure [Recovering/Resolving]
  - Pulmonary hypertension [Recovering/Resolving]
  - Pleural effusion [Recovered/Resolved]
